FAERS Safety Report 22196032 (Version 1)
Quarter: 2023Q2

REPORT INFORMATION
  Report Type: Other
  Country: US (occurrence: US)
  Receive Date: 20230411
  Receipt Date: 20230411
  Transmission Date: 20230722
  Serious: Yes (Death)
  Sender: FDA-Public Use
  Company Number: US-ALVOGEN-2023089823

PATIENT
  Age: 36 Year
  Sex: Male

DRUGS (9)
  1. LIDOCAINE [Suspect]
     Active Substance: LIDOCAINE
     Indication: Drug abuse
  2. FENTANYL [Suspect]
     Active Substance: FENTANYL
     Indication: Drug abuse
  3. HEROIN [Suspect]
     Active Substance: DIAMORPHINE
     Indication: Drug abuse
  4. TRAMADOL [Suspect]
     Active Substance: TRAMADOL
     Indication: Drug abuse
  5. COCAINE [Suspect]
     Active Substance: COCAINE
     Indication: Drug abuse
  6. DIPHENHYDRAMINE [Suspect]
     Active Substance: DIPHENHYDRAMINE
     Indication: Suicide attempt
  7. QUININE [Suspect]
     Active Substance: QUININE
     Indication: Drug abuse
  8. PARAFLUOROFENTANYL [Suspect]
     Active Substance: PARAFLUOROFENTANYL
     Indication: Drug abuse
  9. DESPROPIONYLFENTANYL [Suspect]
     Active Substance: DESPROPIONYLFENTANYL
     Indication: Drug abuse

REACTIONS (4)
  - Drug abuse [Fatal]
  - Prescription drug used without a prescription [Unknown]
  - Cardiac arrest [Fatal]
  - Respiratory arrest [Fatal]
